FAERS Safety Report 21747073 (Version 1)
Quarter: 2022Q4

REPORT INFORMATION
  Report Type: Spontaneous
  Country: CA (occurrence: CA)
  Receive Date: 20221219
  Receipt Date: 20221219
  Transmission Date: 20230113
  Serious: Yes (Life-Threatening)
  Sender: FDA-Public Use
  Company Number: CA-TEVA-2022-CA-2835888

PATIENT
  Age: 69 Year
  Sex: Female
  Weight: 54 kg

DRUGS (2)
  1. ETOPOSIDE [Suspect]
     Active Substance: ETOPOSIDE
     Indication: Lung cancer metastatic
     Route: 042
  2. CISPLATIN [Concomitant]
     Active Substance: CISPLATIN
     Indication: Product used for unknown indication
     Route: 042

REACTIONS (5)
  - Infusion related reaction [Recovered/Resolved]
  - Syncope [Recovered/Resolved]
  - Drug provocation test [Recovered/Resolved]
  - Blood pressure immeasurable [Recovered/Resolved]
  - No reaction on previous exposure to drug [Recovered/Resolved]
